FAERS Safety Report 22861766 (Version 2)
Quarter: 2024Q1

REPORT INFORMATION
  Report Type: Spontaneous
  Country: US (occurrence: US)
  Receive Date: 20230824
  Receipt Date: 20240223
  Transmission Date: 20240410
  Serious: No
  Sender: FDA-Public Use
  Company Number: US-MYLANLABS-2023M1086469

PATIENT
  Age: 78 Year
  Sex: Male
  Weight: 74.38 kg

DRUGS (3)
  1. SEMGLEE (INSULIN GLARGINE-YFGN) [Suspect]
     Active Substance: INSULIN GLARGINE-YFGN
     Indication: Type 2 diabetes mellitus
     Dosage: 40, 45, OR 50 UNITS, BID (DEPENDING ON READING AT THE TIME OF SHOT)
     Route: 058
     Dates: start: 202301
  2. DEVICE [Suspect]
     Active Substance: DEVICE
     Indication: Type 2 diabetes mellitus
  3. MOUNJARO [Concomitant]
     Active Substance: TIRZEPATIDE
     Indication: Type 2 diabetes mellitus
     Dosage: UNK UNK, QW (2.5 ONCE A WEEK),
     Route: 065

REACTIONS (4)
  - Weight decreased [Unknown]
  - Pain [Unknown]
  - Wrong technique in device usage process [Unknown]
  - Device mechanical issue [Unknown]

NARRATIVE: CASE EVENT DATE: 20230801
